FAERS Safety Report 19140559 (Version 2)
Quarter: 2021Q2

REPORT INFORMATION
  Report Type: Spontaneous
  Country: US (occurrence: US)
  Receive Date: 20210415
  Receipt Date: 20210512
  Transmission Date: 20210717
  Serious: No
  Sender: FDA-Public Use
  Company Number: US-PFIZER INC-2021376629

PATIENT
  Age: 61 Year
  Sex: Female

DRUGS (2)
  1. IBRANCE [Suspect]
     Active Substance: PALBOCICLIB
     Indication: BREAST CANCER FEMALE
     Dosage: 100 MG, CYCLIC (ONCE DAILY FOR 21 DAYS 7 DAYS OFF)
     Dates: start: 20190322
  2. IBRANCE [Suspect]
     Active Substance: PALBOCICLIB
     Dosage: 100 MG, CYCLIC (ONCE DAILY FOR 21 DAYS 7 DAYS OFF)
     Dates: start: 20200421

REACTIONS (4)
  - Product dose omission issue [Unknown]
  - Alopecia [Unknown]
  - Nausea [Unknown]
  - Diarrhoea [Unknown]
